FAERS Safety Report 9000567 (Version 1)
Quarter: 2013Q1

REPORT INFORMATION
  Report Type: Spontaneous
  Country: US (occurrence: US)
  Receive Date: 20130107
  Receipt Date: 20130107
  Transmission Date: 20140127
  Serious: No
  Sender: FDA-Public Use
  Company Number: US-PFIZER INC-2013002705

PATIENT
  Age: 46 Year
  Sex: Female
  Weight: 54.88 kg

DRUGS (3)
  1. NEURONTIN [Suspect]
     Indication: SPONDYLITIS
     Dosage: 300 MG, 1X/DAY
     Route: 048
     Dates: start: 201212
  2. CELEXA [Concomitant]
     Dosage: UNK
     Dates: start: 20121205
  3. AMPICILLIN [Concomitant]
     Dosage: 250 MG, 2X/DAY
     Dates: start: 20121205

REACTIONS (3)
  - Off label use [Unknown]
  - Tinnitus [Not Recovered/Not Resolved]
  - Drug ineffective for unapproved indication [Unknown]
